FAERS Safety Report 14651921 (Version 5)
Quarter: 2021Q2

REPORT INFORMATION
  Report Type: Report from Study
  Country: US (occurrence: US)
  Receive Date: 20180317
  Receipt Date: 20210416
  Transmission Date: 20210716
  Serious: No
  Sender: FDA-Public Use
  Company Number: PHEH2018US010570

PATIENT
  Age: 49 Year
  Sex: Female
  Weight: 49.89 kg

DRUGS (2)
  1. COSENTYX [Suspect]
     Active Substance: SECUKINUMAB
     Dosage: 300 MG, QMO
     Route: 058
  2. COSENTYX [Suspect]
     Active Substance: SECUKINUMAB
     Indication: PSORIASIS
     Dosage: UNK UNK, QMO
     Route: 058
     Dates: start: 201410

REACTIONS (4)
  - Purpura senile [Not Recovered/Not Resolved]
  - Petechiae [Not Recovered/Not Resolved]
  - Product dose omission issue [Unknown]
  - Occult blood [Unknown]

NARRATIVE: CASE EVENT DATE: 201705
